FAERS Safety Report 25657041 (Version 1)
Quarter: 2025Q3

REPORT INFORMATION
  Report Type: Spontaneous
  Country: CN (occurrence: CN)
  Receive Date: 20250807
  Receipt Date: 20250807
  Transmission Date: 20251021
  Serious: Yes (Other)
  Sender: BEIGENE
  Company Number: CN-BEIGENE-BGN-2025-012853

PATIENT
  Age: 82 Year

DRUGS (4)
  1. TISLELIZUMAB [Suspect]
     Active Substance: TISLELIZUMAB
     Indication: Adenosquamous cell lung cancer stage III
  2. TISLELIZUMAB [Suspect]
     Active Substance: TISLELIZUMAB
  3. PACLITAXEL [Concomitant]
     Active Substance: PACLITAXEL
     Indication: Adenosquamous cell lung cancer stage III
  4. CARBOPLATIN [Concomitant]
     Active Substance: CARBOPLATIN
     Indication: Adenosquamous cell lung cancer stage III

REACTIONS (4)
  - Immune-mediated lung disease [Unknown]
  - Pericardial effusion [Unknown]
  - Thrombosis [Unknown]
  - Pleural effusion [Unknown]
